FAERS Safety Report 16670658 (Version 1)
Quarter: 2019Q3

REPORT INFORMATION
  Report Type: Spontaneous
  Country: US (occurrence: US)
  Receive Date: 20190805
  Receipt Date: 20190805
  Transmission Date: 20191004
  Serious: No
  Sender: FDA-Public Use
  Company Number: US-RADIUS HEALTH INC.-2019US001721

PATIENT
  Sex: Female

DRUGS (1)
  1. TYMLOS [Suspect]
     Active Substance: ABALOPARATIDE
     Indication: OSTEOPOROSIS POSTMENOPAUSAL
     Dosage: UNK
     Dates: start: 201901

REACTIONS (5)
  - Vertigo [Recovering/Resolving]
  - Influenza like illness [Recovering/Resolving]
  - Product dose omission [Unknown]
  - Dysgeusia [Recovering/Resolving]
  - Fatigue [Recovering/Resolving]
